FAERS Safety Report 4489113-6 (Version None)
Quarter: 2004Q4

REPORT INFORMATION
  Report Type: 
  Country: None (occurrence: None)
  Receive Date: 20041029
  Receipt Date: 20041026
  Transmission Date: 20050328
  Serious: Yes (Hospitalization)
  Sender: FDA-Public Use
  Company Number: NZ-MERCK-0410NZL00105

PATIENT
  Age: 52 Year
  Sex: Female

DRUGS (5)
  1. VIOXX [Suspect]
     Indication: POST VIRAL FATIGUE SYNDROME
     Route: 048
     Dates: start: 20030801
  2. VIOXX [Suspect]
     Route: 048
     Dates: start: 20040902, end: 20041005
  3. NITROFURANTOIN [Concomitant]
     Route: 048
  4. ESTROGENS, CONJUGATED AND MEDROXYPROGESTERONE ACETATE [Concomitant]
     Indication: HORMONE REPLACEMENT THERAPY
     Route: 065
  5. TRIAZOLAM [Concomitant]
     Route: 065
     Dates: start: 20040909

REACTIONS (3)
  - CHEST PAIN [None]
  - PALPITATIONS [None]
  - PANIC ATTACK [None]
